FAERS Safety Report 6032414-0 (Version None)
Quarter: 2008Q4

REPORT INFORMATION
  Report Type: 
  Country: None (occurrence: None)
  Receive Date: 20081222
  Receipt Date: 20080903
  Transmission Date: 20090506
  Serious: No
  Sender: FDA-Public Use
  Company Number: US-WYE-H05896608

PATIENT
  Age: 60 Year
  Sex: Male

DRUGS (4)
  1. PRISTIQ [Suspect]
     Indication: DEPRESSION
     Dosage: 50 MG 1X PER 1 TOT, ORAL
     Route: 048
     Dates: start: 20080901, end: 20080901
  2. OXYCONTIN [Concomitant]
  3. VALIUM [Concomitant]
  4. AMBIEN [Concomitant]

REACTIONS (4)
  - CHILLS [None]
  - FATIGUE [None]
  - FEELING ABNORMAL [None]
  - UNEVALUABLE EVENT [None]
